FAERS Safety Report 4912879-5 (Version None)
Quarter: 2006Q1

REPORT INFORMATION
  Report Type: 
  Country: None (occurrence: None)
  Receive Date: 20060215
  Receipt Date: 20060202
  Transmission Date: 20060701
  Serious: Yes (Hospitalization, Other)
  Sender: FDA-Public Use
  Company Number: GB-BRISTOL-MYERS SQUIBB COMPANY-13277629

PATIENT
  Age: 52 Year
  Sex: Male

DRUGS (13)
  1. ENDOXAN [Suspect]
     Indication: NON-HODGKIN'S LYMPHOMA
  2. DOXORUBICIN HCL [Suspect]
     Indication: NON-HODGKIN'S LYMPHOMA
  3. VINCRISTINE SULFATE [Suspect]
     Indication: NON-HODGKIN'S LYMPHOMA
  4. PREDNISOLONE [Suspect]
     Indication: NON-HODGKIN'S LYMPHOMA
  5. RITUXIMAB [Suspect]
     Indication: NON-HODGKIN'S LYMPHOMA
  6. CARBAMAZEPINE [Concomitant]
  7. OMEPRAZOLE [Concomitant]
  8. PRAVASTATIN SODIUM [Concomitant]
  9. METOPROLOL [Concomitant]
  10. FRUSEMIDE [Concomitant]
  11. SPIRONOLACTONE [Concomitant]
  12. WARFARIN [Concomitant]
  13. THYROXINE [Concomitant]

REACTIONS (7)
  - CRYPTOGENIC ORGANIZING PNEUMONIA [None]
  - DYSPNOEA [None]
  - HYPOXIA [None]
  - NEUTROPENIA [None]
  - PLEURITIC PAIN [None]
  - PYREXIA [None]
  - RESPIRATORY FAILURE [None]
